FAERS Safety Report 13617972 (Version 1)
Quarter: 2017Q2

REPORT INFORMATION
  Report Type: Report from Study
  Country: US (occurrence: US)
  Receive Date: 20170606
  Receipt Date: 20170606
  Transmission Date: 20170830
  Serious: Yes (Other)
  Sender: FDA-Public Use
  Company Number: US-BAYER-2017-088318

PATIENT
  Age: 58 Year
  Sex: Male

DRUGS (1)
  1. NEXAVAR [Suspect]
     Active Substance: SORAFENIB
     Indication: HEPATOCELLULAR CARCINOMA
     Dosage: 200 MG, BID
     Route: 048
     Dates: start: 20170418, end: 20170522

REACTIONS (5)
  - Diarrhoea [None]
  - Hepatic failure [None]
  - Abdominal distension [None]
  - Hepatomegaly [None]
  - Drug ineffective [None]

NARRATIVE: CASE EVENT DATE: 2017
